FAERS Safety Report 7711536-X (Version None)
Quarter: 2011Q3

REPORT INFORMATION
  Report Type: 
  Country: None (occurrence: None)
  Receive Date: 20110826
  Receipt Date: 20110818
  Transmission Date: 20111222
  Serious: Yes (Other)
  Sender: FDA-Public Use
  Company Number: FR-JNJFOC-20110809533

PATIENT
  Sex: Female

DRUGS (6)
  1. DOXORUBICIN HYDROCHLORIDE [Suspect]
     Indication: BREAST CANCER
     Route: 042
     Dates: start: 20110519
  2. TAMOXIFEN CITRATE [Concomitant]
     Route: 065
     Dates: start: 20110519
  3. OXYCONTIN [Concomitant]
     Route: 065
  4. DOXORUBICIN HYDROCHLORIDE [Suspect]
     Route: 042
     Dates: start: 20110101
  5. DOXORUBICIN HYDROCHLORIDE [Suspect]
     Route: 042
     Dates: start: 20110715
  6. GRANOCYTE [Concomitant]
     Route: 065
     Dates: end: 20110622

REACTIONS (1)
  - RASH ERYTHEMATOUS [None]
